FAERS Safety Report 18902998 (Version 2)
Quarter: 2023Q4

REPORT INFORMATION
  Report Type: Spontaneous
  Country: FR (occurrence: FR)
  Receive Date: 20210217
  Receipt Date: 20231214
  Transmission Date: 20240110
  Serious: Yes (Hospitalization, Other)
  Sender: FDA-Public Use
  Company Number: FR-CELGENE-FRA-20210106609

PATIENT
  Age: 76 Year
  Sex: Female

DRUGS (10)
  1. GEMCITABINE HYDROCHLORIDE [Suspect]
     Active Substance: GEMCITABINE HYDROCHLORIDE
     Indication: Ductal adenocarcinoma of pancreas
     Dosage: 912 MG
     Route: 042
     Dates: start: 20190614, end: 20200402
  2. ABRAXANE [Suspect]
     Active Substance: PACLITAXEL
     Indication: Ductal adenocarcinoma of pancreas
     Dosage: 125 MG
     Route: 042
     Dates: start: 20190614, end: 20190614
  3. ABRAXANE [Suspect]
     Active Substance: PACLITAXEL
     Dosage: 100 MG/M2
     Route: 042
     Dates: start: 20190628, end: 20190725
  4. ABRAXANE [Suspect]
     Active Substance: PACLITAXEL
     Dosage: 90 MG/M2
     Route: 042
     Dates: start: 20190814, end: 20191024
  5. ABRAXANE [Suspect]
     Active Substance: PACLITAXEL
     Dosage: 70 MG/M2
     Route: 042
     Dates: start: 20191107, end: 20191128
  6. ASPARAGINASE [Suspect]
     Active Substance: ASPARAGINASE
     Indication: Ductal adenocarcinoma of pancreas
     Dosage: 100 IU/KG
     Route: 042
     Dates: start: 20190614, end: 20200402
  7. SYMBICORT [Concomitant]
     Active Substance: BUDESONIDE\FORMOTEROL FUMARATE DIHYDRATE
     Indication: Chronic obstructive pulmonary disease
     Dosage: 100 UG EVERY 12 HOURS
     Route: 055
     Dates: start: 2014
  8. BILASTINE [Concomitant]
     Active Substance: BILASTINE
     Indication: Seasonal allergy
     Dosage: 20 MG, 1X/DAY
     Route: 048
     Dates: start: 20200403
  9. ALBUTEROL [Concomitant]
     Active Substance: ALBUTEROL
     Indication: Chronic obstructive pulmonary disease
     Dosage: 100 UG
     Route: 055
     Dates: start: 2014
  10. SPIRIVA [Concomitant]
     Active Substance: TIOTROPIUM BROMIDE MONOHYDRATE
     Indication: Chronic obstructive pulmonary disease
     Dosage: 2.5 UG EVERY 12 HOURS
     Route: 055
     Dates: start: 2014

REACTIONS (1)
  - Thrombotic microangiopathy [Not Recovered/Not Resolved]

NARRATIVE: CASE EVENT DATE: 20200409
